FAERS Safety Report 4554476-X (Version None)
Quarter: 2004Q4

REPORT INFORMATION
  Report Type: 
  Country: None (occurrence: None)
  Receive Date: 20041221
  Receipt Date: 20031017
  Transmission Date: 20050328
  Serious: Yes (Hospitalization)
  Sender: FDA-Public Use
  Company Number: WS030102

PATIENT
  Age: 80 Year
  Sex: Male
  Weight: 79.3795 kg

DRUGS (6)
  1. MUSE [Suspect]
     Indication: ERECTILE DYSFUNCTION
  2. NORVASC [Concomitant]
  3. KLONOPIN [Concomitant]
  4. LISONOPRIL [Concomitant]
  5. ASPIRIN [Concomitant]
  6. MULTI-VITAMINS [Concomitant]

REACTIONS (3)
  - DIARRHOEA [None]
  - DIZZINESS [None]
  - NAUSEA [None]
